FAERS Safety Report 18038448 (Version 3)
Quarter: 2021Q2

REPORT INFORMATION
  Report Type: Spontaneous
  Country: US (occurrence: US)
  Receive Date: 20200717
  Receipt Date: 20210426
  Transmission Date: 20210717
  Serious: No
  Sender: FDA-Public Use
  Company Number: US-BAYER-2020-138050

PATIENT
  Age: 84 Year
  Sex: Male

DRUGS (1)
  1. GADAVIST [Suspect]
     Active Substance: GADOBUTROL
     Indication: MAGNETIC RESONANCE IMAGING
     Dosage: 7 ML, ONCE
     Route: 042
     Dates: start: 20200121, end: 20200121

REACTIONS (8)
  - Haemorrhoids [None]
  - Skin disorder [None]
  - Toxicity to various agents [None]
  - Blood urine present [None]
  - Contrast media deposition [None]
  - Blood homocysteine increased [None]
  - Urinary tract pain [None]
  - Urinary tract inflammation [None]

NARRATIVE: CASE EVENT DATE: 2020
